FAERS Safety Report 9843234 (Version 1)
Quarter: 2014Q1

REPORT INFORMATION
  Report Type: Spontaneous
  Country: US (occurrence: US)
  Receive Date: 20140124
  Receipt Date: 20140124
  Transmission Date: 20141002
  Serious: No
  Sender: FDA-Public Use
  Company Number: US-NOVEN-13US008309

PATIENT
  Age: 68 Year
  Sex: Female

DRUGS (1)
  1. BRISDELLE [Suspect]
     Indication: PRODUCT USED FOR UNKNOWN INDICATION
     Dosage: 7.5 MG, QD
     Route: 048
     Dates: start: 20131121

REACTIONS (2)
  - Vomiting [Recovered/Resolved]
  - Nausea [Not Recovered/Not Resolved]
